FAERS Safety Report 5006352-6 (Version None)
Quarter: 2006Q2

REPORT INFORMATION
  Report Type: 
  Country: None (occurrence: None)
  Receive Date: 20060516
  Receipt Date: 20060503
  Transmission Date: 20061013
  Serious: Yes (Hospitalization)
  Sender: FDA-Public Use
  Company Number: 2006061318

PATIENT
  Age: 74 Year
  Sex: Female
  Weight: 78.4723 kg

DRUGS (4)
  1. SOLU-MEDROL [Suspect]
     Indication: SPINAL COLUMN STENOSIS
     Dosage: 80 MG EPIDURAL
     Route: 008
     Dates: start: 20060115
  2. ALL OTHER THERAPEUTIC PRODUCTS [Concomitant]
  3. METOPROLOL TARTRATE [Concomitant]
  4. PAMELOR [Concomitant]

REACTIONS (17)
  - ANOREXIA [None]
  - ANXIETY [None]
  - ASTHENIA [None]
  - CHILLS [None]
  - EYE PAIN [None]
  - FALL [None]
  - HEADACHE [None]
  - HEART RATE INCREASED [None]
  - HOT FLUSH [None]
  - HYPOTENSION [None]
  - LETHARGY [None]
  - PAIN IN EXTREMITY [None]
  - PALPITATIONS [None]
  - PYREXIA [None]
  - SEPSIS [None]
  - VISION BLURRED [None]
  - VITREOUS FLOATERS [None]
